FAERS Safety Report 15484864 (Version 1)
Quarter: 2018Q4

REPORT INFORMATION
  Report Type: Spontaneous
  Country: US (occurrence: US)
  Receive Date: 20181010
  Receipt Date: 20181010
  Transmission Date: 20190205
  Serious: No
  Sender: FDA-Public Use
  Company Number: US-ROCHE-2135130

PATIENT
  Sex: Female
  Weight: 96.7 kg

DRUGS (6)
  1. ZELBORAF [Suspect]
     Active Substance: VEMURAFENIB
     Indication: HAIRY CELL LEUKAEMIA
     Dosage: TAKE 3 TABLETS BY MOUTH TWI
     Route: 048
     Dates: start: 20160805
  2. LASIX [Concomitant]
     Active Substance: FUROSEMIDE
     Dosage: ONGOING: UNK
     Route: 048
     Dates: start: 20160802
  3. COD LIVER OIL [Concomitant]
     Active Substance: COD LIVER OIL
     Dosage: ONGOING: UNK
     Route: 048
     Dates: start: 20160802
  4. NAPROXEN. [Concomitant]
     Active Substance: NAPROXEN
     Dosage: ONGOING: UNK
     Route: 048
     Dates: start: 20160802
  5. LOVAZA [Concomitant]
     Active Substance: OMEGA-3-ACID ETHYL ESTERS
     Dosage: ONGOING: UNK
     Route: 048
     Dates: start: 20160802
  6. MAXZIDE [Concomitant]
     Active Substance: HYDROCHLOROTHIAZIDE\TRIAMTERENE
     Dosage: ONGOING: UNK
     Route: 048
     Dates: start: 20160802

REACTIONS (1)
  - Platelet count decreased [Unknown]
